FAERS Safety Report 7956370-0 (Version None)
Quarter: 2011Q4

REPORT INFORMATION
  Report Type: 
  Country: None (occurrence: None)
  Receive Date: 20111205
  Receipt Date: 20111202
  Transmission Date: 20120403
  Serious: Yes (Hospitalization)
  Sender: FDA-Public Use
  Company Number: US-PFIZER INC-2011295047

PATIENT
  Sex: Male
  Weight: 127 kg

DRUGS (1)
  1. NIFEDIPINE [Suspect]
     Indication: HYPERTENSION
     Dosage: UNK

REACTIONS (3)
  - DYSPNOEA [None]
  - CHEST PAIN [None]
  - HEADACHE [None]
